FAERS Safety Report 13941440 (Version 1)
Quarter: 2017Q3

REPORT INFORMATION
  Report Type: Spontaneous
  Country: US (occurrence: US)
  Receive Date: 20170906
  Receipt Date: 20170906
  Transmission Date: 20171127
  Serious: No
  Sender: FDA-Public Use
  Company Number: US-ASTRAZENECA-2017SE90261

PATIENT
  Age: 61 Year
  Sex: Female
  Weight: 119.3 kg

DRUGS (6)
  1. PRAVASTATIN. [Concomitant]
     Active Substance: PRAVASTATIN
  2. TRESIBA [Concomitant]
     Active Substance: INSULIN DEGLUDEC
  3. FARXIGA [Suspect]
     Active Substance: DAPAGLIFLOZIN PROPANEDIOL
     Indication: TYPE 2 DIABETES MELLITUS
     Route: 048
     Dates: start: 20161115, end: 20161206
  4. LISINOPRIL. [Suspect]
     Active Substance: LISINOPRIL
     Route: 048
  5. ASPIRIN. [Concomitant]
     Active Substance: ASPIRIN
  6. METFORMIN [Concomitant]
     Active Substance: METFORMIN HYDROCHLORIDE

REACTIONS (2)
  - Gastrooesophageal reflux disease [Not Recovered/Not Resolved]
  - Swelling face [Not Recovered/Not Resolved]

NARRATIVE: CASE EVENT DATE: 2016
